FAERS Safety Report 5344212-1 (Version None)
Quarter: 2007Q2

REPORT INFORMATION
  Report Type: 
  Country: None (occurrence: None)
  Receive Date: 20070531
  Receipt Date: 20070531
  Transmission Date: 20071010
  Serious: Yes (Hospitalization)
  Sender: FDA-Public Use
  Company Number: None

PATIENT
  Sex: Female
  Weight: 73.4 kg

DRUGS (6)
  1. CYCLOPHOSPHAMIDE [Suspect]
     Dosage: 1320 MG
  2. DOXORUBICIN HYDROCHLORIDE [Suspect]
     Dosage: 72 MG
  3. ETOPOSIDE [Suspect]
     Dosage: 360 MG
  4. PREDNISONE TAB [Suspect]
     Dosage: 1100 MG
  5. RITUXIMAB (MOAB C2B8 ANTI CD20, CHIMERIC) [Suspect]
     Dosage: 700 MG
  6. VINCRISTINE SULFATE [Suspect]
     Dosage: 2.8 MG

REACTIONS (7)
  - ACTIVITIES OF DAILY LIVING IMPAIRED [None]
  - BLOOD PRESSURE INADEQUATELY CONTROLLED [None]
  - BONE MARROW FAILURE [None]
  - FEBRILE NEUTROPENIA [None]
  - MUCOSAL INFLAMMATION [None]
  - MUSCULAR WEAKNESS [None]
  - PERFORMANCE STATUS DECREASED [None]
